FAERS Safety Report 10550064 (Version 1)
Quarter: 2014Q4

REPORT INFORMATION
  Report Type: Spontaneous
  Country: GR (occurrence: GR)
  Receive Date: 20141028
  Receipt Date: 20141028
  Transmission Date: 20150529
  Serious: Yes (Other)
  Sender: FDA-Public Use
  Company Number: GR-CUBIST PHARMACEUTICALS, INC.-2014CBST001431

PATIENT

DRUGS (10)
  1. CASPOFUNGIN [Concomitant]
     Active Substance: CASPOFUNGIN
     Indication: ANTIFUNGAL TREATMENT
     Dosage: 100 MG, QD
     Route: 042
  2. CUBICIN [Suspect]
     Active Substance: DAPTOMYCIN
     Indication: PROPHYLAXIS
     Dosage: 500 MG, QD
     Route: 042
  3. MIDAZOLAM [Concomitant]
     Active Substance: MIDAZOLAM\MIDAZOLAM HYDROCHLORIDE
     Dosage: UNK
  4. CUBICIN [Suspect]
     Active Substance: DAPTOMYCIN
     Indication: NECROTISING FASCIITIS
     Dosage: 7.4 MG/KG, QD
     Route: 042
  5. MIDAZOLAM [Concomitant]
     Active Substance: MIDAZOLAM\MIDAZOLAM HYDROCHLORIDE
     Indication: SEDATION
     Dosage: 30 MCG/KG/HR
     Route: 042
  6. FENTANYL. [Concomitant]
     Active Substance: FENTANYL
     Indication: ANALGESIC THERAPY
     Dosage: 3 MCG/KG/MIN
     Route: 042
  7. MEROPENEM. [Concomitant]
     Active Substance: MEROPENEM
     Indication: NECROTISING FASCIITIS
     Dosage: 2 G, Q8H
     Route: 042
  8. LINEZOLID. [Concomitant]
     Active Substance: LINEZOLID
     Indication: ANTIBIOTIC THERAPY
     Dosage: 600 MG, Q12H
     Route: 042
  9. CLINDAMYCIN [Concomitant]
     Active Substance: CLINDAMYCIN\CLINDAMYCIN PHOSPHATE
     Indication: NECROTISING FASCIITIS
     Dosage: 600 MG, Q6H
     Route: 042
  10. BEMIPARINE [Concomitant]
     Indication: ANTICOAGULANT THERAPY
     Dosage: 2500 UNK, BID
     Route: 058

REACTIONS (4)
  - Lemierre syndrome [Recovered/Resolved]
  - Pneumonia [Recovered/Resolved]
  - Pneumonia staphylococcal [None]
  - Oedema peripheral [Recovered/Resolved]
